FAERS Safety Report 6464339-0 (Version None)
Quarter: 2009Q4

REPORT INFORMATION
  Report Type: 
  Country: None (occurrence: None)
  Receive Date: 20091130
  Receipt Date: 20091130
  Transmission Date: 20100525
  Serious: Yes (Disabling)
  Sender: FDA-Public Use
  Company Number: None

PATIENT
  Age: 80 Year
  Sex: Female
  Weight: 56.8 kg

DRUGS (3)
  1. AMITRIPTYLINE HCL [Suspect]
     Indication: HIP FRACTURE
     Dosage: 10 MG AT BEDTIME ORAL
     Route: 048
     Dates: start: 20081108, end: 20081201
  2. MIRTAZAPINE [Suspect]
     Indication: HIP FRACTURE
     Dosage: 15 MG AT BEDTIME ORAL
     Route: 048
     Dates: start: 20081108, end: 20081201
  3. MEGESTROL ACETATE [Concomitant]

REACTIONS (4)
  - AMNESIA [None]
  - CONFUSIONAL STATE [None]
  - HALLUCINATION [None]
  - PANIC ATTACK [None]
